FAERS Safety Report 6564579-6 (Version None)
Quarter: 2010Q1

REPORT INFORMATION
  Report Type: 
  Country: None (occurrence: None)
  Receive Date: 20100201
  Receipt Date: 20100119
  Transmission Date: 20100710
  Serious: Yes (Other)
  Sender: FDA-Public Use
  Company Number: PHHY2010DE03065

PATIENT
  Sex: Male

DRUGS (3)
  1. EUCREAS [Suspect]
     Indication: DIABETES MELLITUS
     Dosage: 1000/50 MG
     Route: 048
     Dates: start: 20091101
  2. CORDINATE [Concomitant]
  3. CORIFEO [Concomitant]

REACTIONS (1)
  - HEART RATE INCREASED [None]
